FAERS Safety Report 8958190 (Version 4)
Quarter: 2013Q1

REPORT INFORMATION
  Report Type: Spontaneous
  Country: PT (occurrence: PT)
  Receive Date: 20121211
  Receipt Date: 20130107
  Transmission Date: 20140127
  Serious: Yes (Hospitalization, Other)
  Sender: FDA-Public Use
  Company Number: PT-ROCHE-1166940

PATIENT
  Age: 50 Year
  Sex: Female
  Weight: 89 kg

DRUGS (5)
  1. XENICAL [Suspect]
     Indication: WEIGHT DECREASED
     Route: 048
     Dates: start: 20121001, end: 20121008
  2. XENICAL [Suspect]
     Indication: WEIGHT CONTROL
  3. XENICAL [Suspect]
     Indication: OBESITY
  4. LEVOTHYROXINE SODIUM [Concomitant]
     Indication: HYPOTHYROIDISM
     Route: 048
     Dates: start: 2008
  5. LATANOPROST [Concomitant]
     Indication: GLAUCOMA
     Dosage: 0.05 MG/ML (1 DROP)
     Route: 047
     Dates: start: 2008

REACTIONS (10)
  - Diverticulitis [Recovering/Resolving]
  - Abdominal pain [Recovering/Resolving]
  - Diarrhoea [Unknown]
  - Prothrombin time prolonged [Recovering/Resolving]
  - Aspartate aminotransferase increased [Recovering/Resolving]
  - Pyrexia [Recovering/Resolving]
  - Malaise [Recovering/Resolving]
  - Alanine aminotransferase increased [Recovering/Resolving]
  - Gamma-glutamyltransferase increased [Recovering/Resolving]
  - Intestinal perforation [Unknown]
